FAERS Safety Report 9730162 (Version 2)
Quarter: 2013Q4

REPORT INFORMATION
  Report Type: Report from Study
  Country: JP (occurrence: JP)
  Receive Date: 20131204
  Receipt Date: 20131204
  Transmission Date: 20140711
  Serious: Yes (Disabling)
  Sender: FDA-Public Use
  Company Number: JP-TAKEDA-2013TJP000109

PATIENT
  Age: 65 Year
  Sex: Female
  Weight: 104 kg

DRUGS (6)
  1. PIOGLITAZONE, METFORMIN [Suspect]
     Indication: TYPE 2 DIABETES MELLITUS
     Dosage: 1 DF, QD
     Route: 048
     Dates: start: 20110801, end: 20120808
  2. APIDRA [Concomitant]
     Indication: TYPE 2 DIABETES MELLITUS
     Dosage: 48 UT, TID
     Route: 042
     Dates: start: 20100321
  3. APIDRA [Concomitant]
     Dosage: 14 UT, TID
     Route: 042
     Dates: end: 20110804
  4. SALIPEX LA [Concomitant]
     Dosage: 80 MG, 1 DAYS
     Route: 048
     Dates: start: 20100422
  5. CRESTOR [Concomitant]
     Dosage: 2.5 MG,1 DAYS
     Route: 048
     Dates: start: 20100107, end: 20130325
  6. MICAMLO AP [Concomitant]
     Dosage: UNK
     Route: 048
     Dates: start: 20110420, end: 20110814

REACTIONS (2)
  - Nephrotic syndrome [Not Recovered/Not Resolved]
  - Muscle contusion [Recovered/Resolved]
